FAERS Safety Report 5642566-X (Version None)
Quarter: 2008Q1

REPORT INFORMATION
  Report Type: 
  Country: None (occurrence: None)
  Receive Date: 20080227
  Receipt Date: 20080227
  Transmission Date: 20080703
  Serious: Yes (Other)
  Sender: FDA-Public Use
  Company Number: None

PATIENT
  Age: 60 Year
  Sex: Female

DRUGS (2)
  1. ORAMORPH SR [Suspect]
     Indication: MYOFASCIAL PAIN SYNDROME
     Dosage: SR 100MG ONE QD #30 (ORAL)
     Route: 048
     Dates: start: 20080124
  2. METHADONE HCL [Suspect]
     Indication: MYOFASCIAL PAIN SYNDROME
     Dosage: 10MG, 5-6 PO BID # 30 (ORAL)
     Route: 048
     Dates: start: 20080130

REACTIONS (4)
  - DYSPNOEA [None]
  - HALLUCINATION [None]
  - PALPITATIONS [None]
  - STOMACH DISCOMFORT [None]
